FAERS Safety Report 9705132 (Version 1)
Quarter: 2013Q4

REPORT INFORMATION
  Report Type: Spontaneous
  Country: IT (occurrence: IT)
  Receive Date: 20131122
  Receipt Date: 20131122
  Transmission Date: 20140711
  Serious: Yes (Death, Hospitalization)
  Sender: FDA-Public Use
  Company Number: IT-BAYER-2013-139948

PATIENT
  Age: 90 Year
  Sex: Female

DRUGS (7)
  1. CARDIOASPIRIN [Suspect]
     Indication: PROPHYLAXIS
     Dosage: DAILY DOSE 1 DF
     Route: 048
     Dates: start: 20100101, end: 20130916
  2. ALLOPURINOL [Concomitant]
  3. METFORMIN [Concomitant]
  4. NITROCOR [Concomitant]
  5. LOSARTAN [Concomitant]
  6. PARIET [Concomitant]
  7. TALOFEN [Concomitant]
     Dosage: UNK

REACTIONS (3)
  - Cerebral haemorrhage [Fatal]
  - Coma [Fatal]
  - Hemiplegia [Fatal]
